FAERS Safety Report 5756253-0 (Version None)
Quarter: 2008Q2

REPORT INFORMATION
  Report Type: 
  Country: None (occurrence: None)
  Receive Date: 20080602
  Receipt Date: 20080521
  Transmission Date: 20081010
  Serious: Yes (Other)
  Sender: FDA-Public Use
  Company Number: US-PFIZER INC-2008045005

PATIENT
  Sex: Female

DRUGS (7)
  1. CHANTIX [Suspect]
     Indication: SMOKING CESSATION THERAPY
     Dosage: TEXT:EVERY DAY
  2. CODEINE SYRUP [Interacting]
     Indication: BRONCHITIS
  3. LITHIUM CARBONATE [Concomitant]
     Indication: DEPRESSION
  4. DEPAKOTE [Concomitant]
     Indication: DEPRESSION
  5. NEURONTIN [Concomitant]
     Indication: DEPRESSION
  6. CLONAZEPAM [Concomitant]
     Indication: DEPRESSION
  7. ASPIRIN [Concomitant]

REACTIONS (3)
  - BRONCHITIS [None]
  - DRUG INTERACTION [None]
  - ILL-DEFINED DISORDER [None]
